FAERS Safety Report 5239247-3 (Version None)
Quarter: 2007Q1

REPORT INFORMATION
  Report Type: 
  Country: None (occurrence: None)
  Receive Date: 20061208
  Receipt Date: 20050831
  Transmission Date: 20070707
  Serious: Yes (Other)
  Sender: FDA-Public Use
  Company Number: 2005UW12987

PATIENT
  Age: 45 Year
  Sex: Male

DRUGS (4)
  1. CRESTOR [Suspect]
  2. CRESTOR [Suspect]
     Dosage: 20 MG QD PO
     Route: 048
  3. LOPID [Concomitant]
  4. BIPOLAR MEDS [Concomitant]

REACTIONS (2)
  - ANXIETY [None]
  - TREMOR [None]
